FAERS Safety Report 9627837 (Version 1)
Quarter: 2013Q4

REPORT INFORMATION
  Report Type: Spontaneous
  Country: US (occurrence: US)
  Receive Date: 20131016
  Receipt Date: 20131016
  Transmission Date: 20140711
  Serious: Yes (Other)
  Sender: FDA-Public Use
  Company Number: US-GLAXOSMITHKLINE-A1043117A

PATIENT
  Sex: Male

DRUGS (1)
  1. VENTOLIN HFA [Suspect]
     Indication: RESPIRATORY DISORDER
     Dates: start: 20100101

REACTIONS (3)
  - Dyspnoea [Unknown]
  - Sensory loss [Unknown]
  - Pneumonia [Unknown]
